FAERS Safety Report 24662380 (Version 1)
Quarter: 2024Q4

REPORT INFORMATION
  Report Type: Report from Study
  Country: MX (occurrence: MX)
  Receive Date: 20241125
  Receipt Date: 20241125
  Transmission Date: 20250115
  Serious: Yes (Other)
  Sender: ABBVIE
  Company Number: MX-ABBVIE-6012095

PATIENT
  Sex: Male
  Weight: 70 kg

DRUGS (1)
  1. VENCLEXTA [Suspect]
     Active Substance: VENETOCLAX
     Indication: Chronic lymphocytic leukaemia
     Dosage: 400 MILLIGRAM?FORM STRENGTH: 100 MILLIGRAM
     Route: 048
     Dates: start: 20241007

REACTIONS (5)
  - Lung induration [Unknown]
  - Fatigue [Unknown]
  - Musculoskeletal chest pain [Not Recovered/Not Resolved]
  - Lymphocyte count abnormal [Unknown]
  - Bone pain [Not Recovered/Not Resolved]
